FAERS Safety Report 19933848 (Version 7)
Quarter: 2021Q4

REPORT INFORMATION
  Report Type: Report from Study
  Country: US (occurrence: US)
  Receive Date: 20211008
  Receipt Date: 20211224
  Transmission Date: 20220303
  Serious: Yes (Hospitalization, Other)
  Sender: FDA-Public Use
  Company Number: US-NOVARTISTESTPH-NVSC2021US229802

PATIENT
  Age: 17 Year
  Sex: Female
  Weight: 55 kg

DRUGS (4)
  1. ILARIS [Suspect]
     Active Substance: CANAKINUMAB
     Indication: PFAPA syndrome
     Dosage: 150 MG, QMO
     Route: 058
     Dates: start: 20210923
  2. ILARIS [Suspect]
     Active Substance: CANAKINUMAB
     Indication: Tumour necrosis factor receptor-associated periodic syndrome
     Dosage: 150 MG, Q4W
     Route: 065
     Dates: start: 202109
  3. ILARIS [Suspect]
     Active Substance: CANAKINUMAB
     Indication: Pyrexia
     Dosage: UNK
     Route: 065
     Dates: start: 20211118
  4. ILARIS [Suspect]
     Active Substance: CANAKINUMAB
     Dosage: 150 MG, QMO
     Route: 058
     Dates: start: 20211001

REACTIONS (19)
  - Epiglottitis [Recovering/Resolving]
  - Cyst [Recovering/Resolving]
  - Drooling [Unknown]
  - Dyspnoea [Unknown]
  - Crying [Unknown]
  - Ear pain [Unknown]
  - Pneumothorax [Unknown]
  - Pneumonia aspiration [Unknown]
  - Delirium [Unknown]
  - Beta haemolytic streptococcal infection [Unknown]
  - Arthralgia [Not Recovered/Not Resolved]
  - Contusion [Unknown]
  - Joint swelling [Unknown]
  - Pain [Unknown]
  - Tenderness [Unknown]
  - Malaise [Unknown]
  - Hypersensitivity [Unknown]
  - Abscess [Unknown]
  - Product use in unapproved indication [Unknown]

NARRATIVE: CASE EVENT DATE: 20211111
